FAERS Safety Report 10084704 (Version 1)
Quarter: 2014Q2

REPORT INFORMATION
  Report Type: Report from Study
  Country: US (occurrence: US)
  Receive Date: 20140417
  Receipt Date: 20140417
  Transmission Date: 20141212
  Serious: Yes (Other)
  Sender: FDA-Public Use
  Company Number: US-GLAXOSMITHKLINE-A1069681A

PATIENT
  Age: 35 Year
  Sex: Female

DRUGS (3)
  1. TYKERB [Suspect]
     Indication: HER-2 POSITIVE BREAST CANCER
     Route: 065
  2. ABRAXANE [Suspect]
     Indication: HER-2 POSITIVE BREAST CANCER
     Route: 065
  3. GEMZAR [Suspect]
     Indication: HER-2 POSITIVE BREAST CANCER
     Route: 065

REACTIONS (1)
  - Metastases to bone [Unknown]
